FAERS Safety Report 6235443-7 (Version None)
Quarter: 2009Q2

REPORT INFORMATION
  Report Type: 
  Country: None (occurrence: None)
  Receive Date: 20090618
  Receipt Date: 20090522
  Transmission Date: 20091009
  Serious: No
  Sender: FDA-Public Use
  Company Number: US-ASTRAZENECA-2009UW07909

PATIENT
  Age: 77 Year
  Sex: Female
  Weight: 68.9 kg

DRUGS (1)
  1. RHINOCORT [Suspect]
     Dosage: 1 SPRAY
     Route: 045
     Dates: start: 20090324, end: 20090326

REACTIONS (4)
  - BLOOD PRESSURE INCREASED [None]
  - HEART RATE INCREASED [None]
  - INSOMNIA [None]
  - PSYCHOMOTOR HYPERACTIVITY [None]
